FAERS Safety Report 5443731-7 (Version None)
Quarter: 2007Q3

REPORT INFORMATION
  Report Type: 
  Country: None (occurrence: None)
  Receive Date: 20070905
  Receipt Date: 20070827
  Transmission Date: 20080115
  Serious: Yes (Other)
  Sender: FDA-Public Use
  Company Number: FR-ABBOTT-07P-056-0378389-00

PATIENT
  Age: 38 Year
  Sex: Male
  Weight: 50 kg

DRUGS (3)
  1. ZECLAR [Suspect]
     Indication: BRONCHITIS
     Route: 048
     Dates: start: 20070501
  2. GALENIC /FLUTICASONE/SALMETEROL/ [Concomitant]
     Indication: BRONCHITIS
  3. GALENIC /FLUTICASONE/SALMETEROL/ [Concomitant]
     Indication: COUGH

REACTIONS (1)
  - HICCUPS [None]
